FAERS Safety Report 7485146-6 (Version None)
Quarter: 2011Q2

REPORT INFORMATION
  Report Type: 
  Country: None (occurrence: None)
  Receive Date: 20110517
  Receipt Date: 20101130
  Transmission Date: 20111010
  Serious: No
  Sender: FDA-Public Use
  Company Number: US-BAYER-2010-001855

PATIENT
  Sex: Female
  Weight: 123 kg

DRUGS (6)
  1. ALEVE (CAPLET) [Suspect]
     Dosage: 440 MG, BID
     Route: 048
  2. GLUCOSAMINE [Concomitant]
  3. PRESERVISION EYE VITAMIN AND MINERAL SUPPL. [Concomitant]
  4. MULTI-VITAMIN [Concomitant]
  5. ALEVE (CAPLET) [Suspect]
     Dosage: DAILY DOSE 440 MG
     Route: 048
  6. LEVOXYL [Concomitant]

REACTIONS (1)
  - NO ADVERSE EVENT [None]
